FAERS Safety Report 7628024-1 (Version None)
Quarter: 2011Q3

REPORT INFORMATION
  Report Type: 
  Country: None (occurrence: None)
  Receive Date: 20110722
  Receipt Date: 20110713
  Transmission Date: 20111222
  Serious: No
  Sender: FDA-Public Use
  Company Number: US-BIOGENIDEC-2011BI015649

PATIENT
  Age: 34 Year
  Sex: Female

DRUGS (1)
  1. TYSABRI [Suspect]
     Indication: MULTIPLE SCLEROSIS
     Route: 042
     Dates: start: 20110422

REACTIONS (7)
  - URTICARIA [None]
  - FLUSHING [None]
  - PAIN IN EXTREMITY [None]
  - ARTHRALGIA [None]
  - DIZZINESS [None]
  - CHILLS [None]
  - NAUSEA [None]
